FAERS Safety Report 5028797-0 (Version None)
Quarter: 2006Q2

REPORT INFORMATION
  Report Type: 
  Country: None (occurrence: None)
  Receive Date: 20060501
  Receipt Date: 20060315
  Transmission Date: 20061013
  Serious: No
  Sender: FDA-Public Use
  Company Number: 200612534US

PATIENT
  Age: 39 Year
  Sex: Female

DRUGS (1)
  1. KETEK [Suspect]
     Indication: SINUSITIS
     Dosage: 800 MG QD PO
     Route: 048
     Dates: start: 20060101

REACTIONS (3)
  - ALANINE AMINOTRANSFERASE INCREASED [None]
  - DIZZINESS [None]
  - VISION BLURRED [None]
